FAERS Safety Report 11946323 (Version 1)
Quarter: 2016Q1

REPORT INFORMATION
  Report Type: Spontaneous
  Country: US (occurrence: US)
  Receive Date: 20160125
  Receipt Date: 20160125
  Transmission Date: 20160526
  Serious: Yes (Death)
  Sender: FDA-Public Use
  Company Number: US-MALLINCKRODT-T201600126

PATIENT
  Age: 32 Year
  Sex: Female

DRUGS (7)
  1. INOMAX [Suspect]
     Active Substance: NITRIC OXIDE
     Dosage: 20 PPM, CONTINUOUS
     Dates: start: 20160113, end: 20160113
  2. INOMAX [Suspect]
     Active Substance: NITRIC OXIDE
     Dosage: 25 PPM, CONTINUOUS
     Dates: start: 20160113, end: 20160113
  3. INOMAX [Suspect]
     Active Substance: NITRIC OXIDE
     Dosage: 30 PPM, CONTINUOUS
     Dates: start: 20160111, end: 20160113
  4. INOMAX [Suspect]
     Active Substance: NITRIC OXIDE
     Indication: RESPIRATORY FAILURE
     Dosage: 20 PPM, CONTINUOUS
     Dates: start: 20160109, end: 20160111
  5. INOMAX [Suspect]
     Active Substance: NITRIC OXIDE
     Dosage: 15 PPM,CONTINUOUS
     Dates: start: 20160113, end: 20160113
  6. INOMAX [Suspect]
     Active Substance: NITRIC OXIDE
     Dosage: 5 PPM, CONTINUOUS
     Dates: start: 20160113
  7. INOMAX [Suspect]
     Active Substance: NITRIC OXIDE
     Dosage: 10 PPM, CONTINUOUS
     Dates: start: 20160113, end: 20160113

REACTIONS (3)
  - Multiple organ dysfunction syndrome [Fatal]
  - Off label use [Unknown]
  - Drug ineffective for unapproved indication [Not Recovered/Not Resolved]

NARRATIVE: CASE EVENT DATE: 20160113
